FAERS Safety Report 5449713-3 (Version None)
Quarter: 2007Q3

REPORT INFORMATION
  Report Type: 
  Country: None (occurrence: None)
  Receive Date: 20070912
  Receipt Date: 20070904
  Transmission Date: 20080115
  Serious: Yes (Hospitalization, Other)
  Sender: FDA-Public Use
  Company Number: US-JNJFOC-20070604018

PATIENT
  Sex: Female
  Weight: 102.97 kg

DRUGS (4)
  1. REMICADE [Suspect]
     Indication: RHEUMATOID ARTHRITIS
     Dosage: LAST 4 YEARS. 5 VIALS
     Route: 042
  2. METHOTREXATE [Concomitant]
  3. ANALAGESIC [Concomitant]
  4. NON-STEROIDAL ANTI-INFLAMMATORY [Concomitant]

REACTIONS (1)
  - HIP ARTHROPLASTY [None]
